FAERS Safety Report 21437944 (Version 1)
Quarter: 2022Q4

REPORT INFORMATION
  Report Type: Report from Study
  Country: US (occurrence: US)
  Receive Date: 20221011
  Receipt Date: 20221011
  Transmission Date: 20230112
  Serious: Yes (Other)
  Sender: FDA-Public Use
  Company Number: US-ABBVIE-4149270

PATIENT
  Sex: Male

DRUGS (4)
  1. HUMIRA [Suspect]
     Active Substance: ADALIMUMAB
     Indication: Rheumatoid arthritis
     Route: 058
  2. Moderna [Concomitant]
     Indication: COVID-19 immunisation
     Dosage: 1 IN ONCE (1ST DOSE)
     Route: 030
     Dates: start: 20210101, end: 20210101
  3. Moderna [Concomitant]
     Indication: COVID-19 immunisation
     Dosage: 1 IN ONCE (2ND DOSE)
     Route: 030
     Dates: start: 20210201, end: 20210201
  4. Moderna [Concomitant]
     Indication: COVID-19 immunisation
     Dosage: 1 IN ONCE (3RD DOSE)
     Route: 030
     Dates: start: 20220101, end: 20220101

REACTIONS (3)
  - Head injury [Unknown]
  - Limb injury [Unknown]
  - Fall [Unknown]
